FAERS Safety Report 20010133 (Version 2)
Quarter: 2021Q4

REPORT INFORMATION
  Report Type: Spontaneous
  Country: US (occurrence: None)
  Receive Date: 20211028
  Receipt Date: 20211212
  Transmission Date: 20220303
  Serious: No
  Sender: FDA-Public Use
  Company Number: 2021A777733

PATIENT
  Sex: Male
  Weight: 172.4 kg

DRUGS (2)
  1. BYDUREON BCISE [Suspect]
     Active Substance: EXENATIDE
     Indication: Glycosylated haemoglobin
     Route: 058
  2. BYDUREON BCISE [Suspect]
     Active Substance: EXENATIDE
     Indication: Weight decreased
     Route: 058

REACTIONS (5)
  - Urticaria [Unknown]
  - Injection site pain [Unknown]
  - Injection site cellulitis [Unknown]
  - Injection site erythema [Unknown]
  - Device leakage [Unknown]
